FAERS Safety Report 25459242 (Version 2)
Quarter: 2025Q3

REPORT INFORMATION
  Report Type: Spontaneous
  Country: EU (occurrence: EU)
  Receive Date: 20250620
  Receipt Date: 20250707
  Transmission Date: 20251021
  Serious: Yes (Other)
  Sender: CSL BEHRING
  Company Number: EU-BEH-2025209033

PATIENT
  Age: 74 Year
  Sex: Male

DRUGS (13)
  1. PRIVIGEN [Suspect]
     Active Substance: HUMAN IMMUNOGLOBULIN G
     Route: 042
     Dates: start: 2009, end: 20250610
  2. PRIVIGEN [Suspect]
     Active Substance: HUMAN IMMUNOGLOBULIN G
     Route: 042
  3. PRIVIGEN [Suspect]
     Active Substance: HUMAN IMMUNOGLOBULIN G
     Route: 065
     Dates: start: 20250610
  4. PREGABALIN [Concomitant]
     Active Substance: PREGABALIN
  5. CANDESARTAN [Concomitant]
     Active Substance: CANDESARTAN
  6. IBUPROFEN [Concomitant]
     Active Substance: IBUPROFEN
  7. LEVOTHYROXINE SODIUM [Concomitant]
     Active Substance: LEVOTHYROXINE SODIUM
  8. NALOXONE HYDROCHLORIDE\TILIDINE HYDROCHLORIDE [Concomitant]
     Active Substance: NALOXONE HYDROCHLORIDE\TILIDINE HYDROCHLORIDE
  9. METAMIZOL [Concomitant]
     Active Substance: METAMIZOLE SODIUM
  10. BISOPROLOL [Concomitant]
     Active Substance: BISOPROLOL
  11. ATORVASTATIN [Concomitant]
     Active Substance: ATORVASTATIN
  12. FENOTEROL HYDROBROMIDE\IPRATROPIUM BROMIDE [Concomitant]
     Active Substance: FENOTEROL HYDROBROMIDE\IPRATROPIUM BROMIDE
  13. ASPIRIN [Concomitant]
     Active Substance: ASPIRIN

REACTIONS (3)
  - Angioedema [Unknown]
  - Pruritus [Unknown]
  - Swollen tongue [Unknown]

NARRATIVE: CASE EVENT DATE: 20250610
